FAERS Safety Report 10670906 (Version 2)
Quarter: 2015Q1

REPORT INFORMATION
  Report Type: Report from Study
  Country: DE (occurrence: DE)
  Receive Date: 20141223
  Receipt Date: 20150108
  Transmission Date: 20150720
  Serious: Yes (Death, Hospitalization)
  Sender: FDA-Public Use
  Company Number: PHHO2014DE016891

PATIENT
  Age: 43 Year
  Sex: Male

DRUGS (1)
  1. LDK378 [Suspect]
     Active Substance: CERITINIB
     Indication: NON-SMALL CELL LUNG CANCER
     Dosage: 750 MG, BID
     Route: 048
     Dates: start: 20141109, end: 20141214

REACTIONS (3)
  - Gastric perforation [Not Recovered/Not Resolved]
  - Non-small cell lung cancer [Fatal]
  - Malignant neoplasm progression [Fatal]

NARRATIVE: CASE EVENT DATE: 20141215
